FAERS Safety Report 4970002-5 (Version None)
Quarter: 2006Q1

REPORT INFORMATION
  Report Type: 
  Country: None (occurrence: None)
  Receive Date: 20060202
  Receipt Date: 20051121
  Transmission Date: 20060701
  Serious: Yes (Other)
  Sender: FDA-Public Use
  Company Number: US-2005-021508

PATIENT
  Age: 34 Year
  Sex: Female
  Weight: 58.5 kg

DRUGS (2)
  1. MIRENA [Suspect]
     Indication: CONTRACEPTION
     Dosage: 20UG/DAY CONT INTRA-UTERINE
     Route: 015
     Dates: start: 20051006, end: 20051012
  2. KARIVA [Concomitant]

REACTIONS (2)
  - COMPLICATION OF DEVICE REMOVAL [None]
  - UTERINE PERFORATION [None]
